FAERS Safety Report 6382164-6 (Version None)
Quarter: 2009Q3

REPORT INFORMATION
  Report Type: 
  Country: None (occurrence: None)
  Receive Date: 20090930
  Receipt Date: 20090925
  Transmission Date: 20100115
  Serious: Yes (Death)
  Sender: FDA-Public Use
  Company Number: GR-BRISTOL-MYERS SQUIBB COMPANY-14792808

PATIENT
  Age: 60 Year
  Sex: Male

DRUGS (3)
  1. ABILIFY [Suspect]
     Indication: PSYCHOTIC DISORDER
     Dosage: 1 DF= 10 OR 15 MG TABS
     Route: 048
     Dates: start: 20090201
  2. REMERON [Concomitant]
  3. BENZODIAZEPINES [Concomitant]

REACTIONS (2)
  - GENERALISED OEDEMA [None]
  - PULMONARY OEDEMA [None]
